FAERS Safety Report 7441923-9 (Version None)
Quarter: 2011Q2

REPORT INFORMATION
  Report Type: 
  Country: None (occurrence: None)
  Receive Date: 20110428
  Receipt Date: 20101105
  Transmission Date: 20111010
  Serious: No
  Sender: FDA-Public Use
  Company Number: US-ASTRAZENECA-2010SE47560

PATIENT
  Age: 38 Year
  Sex: Female

DRUGS (6)
  1. MICRODANTIN [Concomitant]
  2. ZOMIG [Suspect]
     Indication: MIGRAINE
     Route: 048
     Dates: start: 20060101
  3. WELLBUTRIN XL [Concomitant]
  4. ZOFRAN [Concomitant]
  5. ZOLOFT [Concomitant]
  6. PHENERGAN HCL [Concomitant]

REACTIONS (3)
  - MIGRAINE [None]
  - DRUG DOSE OMISSION [None]
  - HEADACHE [None]
